FAERS Safety Report 5525260-5 (Version None)
Quarter: 2007Q4

REPORT INFORMATION
  Report Type: 
  Country: None (occurrence: None)
  Receive Date: 20071120
  Receipt Date: 20071112
  Transmission Date: 20080405
  Serious: Yes (Death)
  Sender: FDA-Public Use
  Company Number: PAR_01795_2007

PATIENT
  Sex: Female

DRUGS (1)
  1. MEGACE ES [Suspect]
     Indication: DECREASED APPETITE
     Dosage: DF
     Dates: start: 20071001

REACTIONS (1)
  - INFECTION [None]
